FAERS Safety Report 8871567 (Version 1)
Quarter: 2012Q4

REPORT INFORMATION
  Report Type: 
  Country: CA (occurrence: CA)
  Receive Date: 20121029
  Receipt Date: 20121029
  Transmission Date: 20130627
  Serious: Yes (Other)
  Sender: FDA-Public Use
  Company Number: CA-SHIRE-ALL1-2012-05068

PATIENT
  Sex: Male

DRUGS (2)
  1. VYVANSE [Suspect]
     Indication: ATTENTION DEFICIT/HYPERACTIVITY DISORDER
     Dosage: 60 mg, 1x/day:qd
     Route: 048
     Dates: start: 2012, end: 2012
  2. VYVANSE [Suspect]
     Dosage: UNK, Unknown
     Route: 048
     Dates: start: 2012, end: 20121015

REACTIONS (5)
  - Paranoia [Not Recovered/Not Resolved]
  - Mania [Not Recovered/Not Resolved]
  - Weight decreased [Not Recovered/Not Resolved]
  - Tic [Not Recovered/Not Resolved]
  - Condition aggravated [Not Recovered/Not Resolved]
